FAERS Safety Report 4265879-5 (Version None)
Quarter: 2004Q1

REPORT INFORMATION
  Report Type: 
  Country: None (occurrence: None)
  Receive Date: 20040106
  Receipt Date: 20031224
  Transmission Date: 20041129
  Serious: Yes (Other)
  Sender: FDA-Public Use
  Company Number: US-JNJFOC-20031205331

PATIENT
  Age: 74 Year
  Sex: Male
  Weight: 81.6475 kg

DRUGS (11)
  1. INFLIXIMAB (INFLIXIMAB, RECOMBINANT) LYOPHILIZED POWDER [Suspect]
     Indication: RHEUMATOID ARTHRITIS
     Dosage: INTRAVENOUS
     Route: 042
     Dates: start: 20030325
  2. MULTIVITAMIN (MULTIVITAMINS) [Concomitant]
  3. VITAMIN E (TOCOPHERAL) [Concomitant]
  4. ASPIRIN [Concomitant]
  5. SULINDAC [Concomitant]
  6. FOLIC ACID [Concomitant]
  7. ATENOLOL [Concomitant]
  8. ZOCOR [Concomitant]
  9. METHOTREXATE [Concomitant]
  10. OCCUPRESS (CARTEOLOL HYDROCHLORIDE) [Concomitant]
  11. XALATAN [Concomitant]

REACTIONS (1)
  - BASAL CELL CARCINOMA [None]
